FAERS Safety Report 14958230 (Version 5)
Quarter: 2022Q3

REPORT INFORMATION
  Report Type: Spontaneous
  Country: BE (occurrence: BE)
  Receive Date: 20180531
  Receipt Date: 20220812
  Transmission Date: 20221027
  Serious: Yes (Other)
  Sender: FDA-Public Use
  Company Number: None

PATIENT
  Age: 24 Year
  Sex: Female

DRUGS (22)
  1. BISOPROLOL [Suspect]
     Active Substance: BISOPROLOL
     Indication: Occupational exposure to product
     Dosage: UNK (AIRBORNE EXPOSURE)
     Route: 061
  2. BISOPROLOL [Suspect]
     Active Substance: BISOPROLOL
     Dosage: UNK
     Route: 065
  3. LISINOPRIL [Suspect]
     Active Substance: LISINOPRIL
     Indication: Occupational exposure to product
     Dosage: UNK (AIRBORNE EXPOSURE)
     Route: 061
  4. LISINOPRIL [Suspect]
     Active Substance: LISINOPRIL
     Dosage: UNK
     Route: 065
  5. LORMETAZEPAM [Suspect]
     Active Substance: LORMETAZEPAM
     Indication: Occupational exposure to product
     Dosage: UNK (AIRBORNE EXPOSURE)
     Route: 061
  6. LORMETAZEPAM [Suspect]
     Active Substance: LORMETAZEPAM
     Dosage: UNK
     Route: 065
  7. SOTALOL [Suspect]
     Active Substance: SOTALOL
     Indication: Occupational exposure to product
     Dosage: UNK (AIRBORNE EXPOSURE)
     Route: 061
  8. SOTALOL [Suspect]
     Active Substance: SOTALOL
     Dosage: UNK
     Route: 065
  9. METOPROLOL [Suspect]
     Active Substance: METOPROLOL
     Indication: Occupational exposure to product
     Dosage: UNK (AIRBORNE EXPOSURE)
     Route: 061
  10. METOPROLOL [Suspect]
     Active Substance: METOPROLOL
     Dosage: UNK
     Route: 065
  11. CAPTOPRIL [Suspect]
     Active Substance: CAPTOPRIL
     Indication: Occupational exposure to product
     Dosage: UNK
     Route: 065
  12. PROPRANOLOL [Suspect]
     Active Substance: PROPRANOLOL HYDROCHLORIDE
     Indication: Occupational exposure to product
     Dosage: UNK (AIRBORNE EXPOSURE)
     Route: 061
  13. PROPRANOLOL [Suspect]
     Active Substance: PROPRANOLOL HYDROCHLORIDE
     Dosage: UNK
     Route: 065
  14. ALPRAZOLAM [Suspect]
     Active Substance: ALPRAZOLAM
     Indication: Occupational exposure to product
     Dosage: UNK (AIRBORNE EXPOSURE)
     Route: 061
  15. ALPRAZOLAM [Suspect]
     Active Substance: ALPRAZOLAM
     Dosage: UNK
     Route: 065
  16. ENALAPRIL [Suspect]
     Active Substance: ENALAPRIL
     Indication: Occupational exposure to product
     Dosage: UNK (AIRBORNE EXPOSURE)
     Route: 061
  17. ENALAPRIL [Suspect]
     Active Substance: ENALAPRIL
     Dosage: UNK
     Route: 065
  18. PERINDOPRIL [Suspect]
     Active Substance: PERINDOPRIL
     Indication: Occupational exposure to product
     Dosage: UNK (AIRBORNE EXPOSURE)
     Route: 061
  19. PERINDOPRIL [Suspect]
     Active Substance: PERINDOPRIL
     Dosage: UNK
     Route: 065
  20. CLONIDINE [Suspect]
     Active Substance: CLONIDINE
     Indication: Product used for unknown indication
     Dosage: UNK
     Route: 065
  21. TETRAZEPAM [Suspect]
     Active Substance: TETRAZEPAM
     Indication: Occupational exposure to product
     Dosage: UNK
     Route: 061
  22. TETRAZEPAM [Suspect]
     Active Substance: TETRAZEPAM
     Dosage: UNK
     Route: 065

REACTIONS (11)
  - Skin test positive [Unknown]
  - Blepharitis [Unknown]
  - Localised oedema [Unknown]
  - Skin exfoliation [Unknown]
  - Erythema [Unknown]
  - Pruritus [Unknown]
  - Drug hypersensitivity [Unknown]
  - Accidental exposure to product [Unknown]
  - Wrong technique in product usage process [Unknown]
  - Occupational exposure to product [Unknown]
  - Irritability [Unknown]

NARRATIVE: CASE EVENT DATE: 20120101
